FAERS Safety Report 17920057 (Version 1)
Quarter: 2020Q2

REPORT INFORMATION
  Report Type: Other
  Country: DE (occurrence: DE)
  Receive Date: 20200620
  Receipt Date: 20200620
  Transmission Date: 20200714
  Serious: Yes (Hospitalization)
  Sender: FDA-Public Use
  Company Number: DE-EMCURE PHARMACEUTICALS LTD-2020-EPL-000772

PATIENT
  Age: 56 Year
  Sex: Female

DRUGS (15)
  1. EMPAGLIFLOZIN [Concomitant]
     Active Substance: EMPAGLIFLOZIN
     Dosage: 10 MILLIGRAM, 1-0-0-0
     Route: 048
  2. IRINOTECAN HYDROCHLORIDE. [Suspect]
     Active Substance: IRINOTECAN HYDROCHLORIDE
     Indication: PRODUCT USED FOR UNKNOWN INDICATION
     Dosage: NK MG, ACCORDING TO THE SCHEME
  3. METAMIZOLE [Concomitant]
     Active Substance: METAMIZOLE
     Dosage: 500 MILLIGRAM, 40-40-40-40, TROPFEN
     Route: 048
  4. METFORMIN [Concomitant]
     Active Substance: METFORMIN HYDROCHLORIDE
     Dosage: 500 MILLIGRAM, 1-0-1-0
     Route: 048
  5. ALLOPURINOL. [Concomitant]
     Active Substance: ALLOPURINOL
     Dosage: 300 MILLIGRAM, 1-0-0-0
     Route: 048
  6. TORASEMID [Concomitant]
     Active Substance: TORSEMIDE
     Dosage: 10 MILLIGRAM, 1-0-0-0
     Route: 048
  7. ATORVASTATIN [Concomitant]
     Active Substance: ATORVASTATIN
     Dosage: 20 MILLIGRAM, 0-0-2-0
     Route: 048
  8. DULOXETINE. [Suspect]
     Active Substance: DULOXETINE
     Indication: PRODUCT USED FOR UNKNOWN INDICATION
     Dosage: 30 MILLIGRAM, 1-0-0-0
     Route: 048
  9. SITAGLIPTIN [Concomitant]
     Active Substance: SITAGLIPTIN
     Dosage: 50 MILLIGRAM,  1-0-0-0
     Route: 048
  10. ACETYLSALICYLIC ACID [Suspect]
     Active Substance: ASPIRIN
     Indication: PRODUCT USED FOR UNKNOWN INDICATION
     Dosage: 100 MILLIGRAM, 1-0-0-0
     Route: 048
  11. PANTOPRAZOLE [Concomitant]
     Active Substance: PANTOPRAZOLE
     Dosage: 40 MILLIGRAM, 1-0-0-0
     Route: 048
  12. LEVOTHYROXINE SODIUM. [Concomitant]
     Active Substance: LEVOTHYROXINE SODIUM
     Dosage: 100 MICROGRAM, 1-0-0-0
     Route: 048
  13. PREGABALIN. [Concomitant]
     Active Substance: PREGABALIN
     Dosage: 25 MILLIGRAM, 0-0-1-0
     Route: 048
  14. FLUOROURACIL. [Suspect]
     Active Substance: FLUOROURACIL
     Indication: PRODUCT USED FOR UNKNOWN INDICATION
     Dosage: NK MG, ACCORDING TO THE SCHEME
  15. FOLINIC ACID [Suspect]
     Active Substance: LEUCOVORIN
     Indication: PRODUCT USED FOR UNKNOWN INDICATION
     Dosage: NK MG, ACCORDING TO THE SCHEME

REACTIONS (7)
  - Anaemia [Unknown]
  - Epistaxis [Unknown]
  - Pallor [Unknown]
  - Haematochezia [Unknown]
  - Condition aggravated [Unknown]
  - General physical health deterioration [Unknown]
  - Diarrhoea [Unknown]
